FAERS Safety Report 6326043-9 (Version None)
Quarter: 2009Q3

REPORT INFORMATION
  Report Type: 
  Country: None (occurrence: None)
  Receive Date: 20090820
  Receipt Date: 20090806
  Transmission Date: 20100115
  Serious: Yes (Other)
  Sender: FDA-Public Use
  Company Number: 2009AP003195

PATIENT
  Age: 10 Year

DRUGS (1)
  1. RISPERIDONE [Suspect]
     Indication: AUTISM
     Dosage: PO
     Route: 048

REACTIONS (2)
  - ACCIDENTAL OVERDOSE [None]
  - RESPIRATORY DEPRESSION [None]
